FAERS Safety Report 8530238-3 (Version None)
Quarter: 2012Q3

REPORT INFORMATION
  Report Type: 
  Country: None (occurrence: None)
  Receive Date: 20120723
  Receipt Date: 20120709
  Transmission Date: 20120928
  Serious: No
  Sender: FDA-Public Use
  Company Number: US-ASTRAZENECA-2012SE39240

PATIENT
  Age: 47 Year
  Sex: Male

DRUGS (2)
  1. SEROQUEL [Suspect]
     Route: 048
  2. SEROQUEL [Suspect]
     Route: 048

REACTIONS (4)
  - BIPOLAR DISORDER [None]
  - ACTIVITIES OF DAILY LIVING IMPAIRED [None]
  - SCHIZOPHRENIA [None]
  - DRUG DOSE OMISSION [None]
